FAERS Safety Report 5007297-8 (Version None)
Quarter: 2006Q2

REPORT INFORMATION
  Report Type: 
  Country: None (occurrence: None)
  Receive Date: 20060517
  Receipt Date: 20060502
  Transmission Date: 20061013
  Serious: No
  Sender: FDA-Public Use
  Company Number: 34453

PATIENT
  Age: 57 Year
  Sex: Male

DRUGS (5)
  1. BSS PLUS [Suspect]
     Indication: SURGERY
     Dates: start: 20060302, end: 20060302
  2. VOLTAREN [Concomitant]
  3. CILOXAN [Concomitant]
  4. PRED FORTE [Concomitant]
  5. ZYMAR [Concomitant]

REACTIONS (5)
  - CHEMICAL EYE INJURY [None]
  - CORNEAL DISORDER [None]
  - CORNEAL SCAR [None]
  - EYE INFLAMMATION [None]
  - KERATITIS [None]
